FAERS Safety Report 17178884 (Version 1)
Quarter: 2019Q4

REPORT INFORMATION
  Report Type: Spontaneous
  Country: CA (occurrence: CA)
  Receive Date: 20191219
  Receipt Date: 20191219
  Transmission Date: 20200122
  Serious: Yes (Other)
  Sender: FDA-Public Use
  Company Number: CA-ASTRAZENECA-2019SF82373

PATIENT
  Age: 72 Year
  Sex: Female
  Weight: 99 kg

DRUGS (11)
  1. ASA [Concomitant]
     Active Substance: ASPIRIN
  2. EZETIMIBE. [Concomitant]
     Active Substance: EZETIMIBE
  3. BRILINTA [Suspect]
     Active Substance: TICAGRELOR
     Indication: ANTIPLATELET THERAPY
     Route: 048
  4. ELTROXIN [Concomitant]
     Active Substance: LEVOTHYROXINE
  5. LOSARTAN. [Concomitant]
     Active Substance: LOSARTAN
  6. CALCIUM [Concomitant]
     Active Substance: CALCIUM
  7. METOPROLOL. [Concomitant]
     Active Substance: METOPROLOL
  8. VITAMIN C [Concomitant]
     Active Substance: ASCORBIC ACID
  9. VITAMIN D [Concomitant]
     Active Substance: VITAMIN D NOS
  10. LYSINE [Concomitant]
     Active Substance: LYSINE
  11. GLUCOSAMINE+CHONDROITIN [Concomitant]

REACTIONS (10)
  - Decreased appetite [Recovering/Resolving]
  - Asthenia [Recovering/Resolving]
  - Decreased activity [Recovering/Resolving]
  - Dyspnoea [Recovering/Resolving]
  - Contusion [Recovering/Resolving]
  - Dizziness [Recovering/Resolving]
  - Fatigue [Recovering/Resolving]
  - Cough [Recovering/Resolving]
  - Poor quality sleep [Recovering/Resolving]
  - Chest discomfort [Recovering/Resolving]
